FAERS Safety Report 4595202-8 (Version None)
Quarter: 2005Q1

REPORT INFORMATION
  Report Type: 
  Country: None (occurrence: None)
  Receive Date: 20050225
  Receipt Date: 20050208
  Transmission Date: 20050727
  Serious: Yes (Death)
  Sender: FDA-Public Use
  Company Number: US_0502111640

PATIENT
  Age: 39 Year
  Sex: Male

DRUGS (1)
  1. SYMBYAX [Suspect]
     Dates: start: 20041101

REACTIONS (1)
  - COMPLETED SUICIDE [None]
